FAERS Safety Report 6195760-6 (Version None)
Quarter: 2009Q2

REPORT INFORMATION
  Report Type: 
  Country: None (occurrence: None)
  Receive Date: 20090520
  Receipt Date: 20070827
  Transmission Date: 20091009
  Serious: Yes (Other)
  Sender: FDA-Public Use
  Company Number: US-ASTRAZENECA-2006UW08161

PATIENT
  Age: 17963 Day
  Sex: Female
  Weight: 97.1 kg

DRUGS (15)
  1. SEROQUEL [Suspect]
     Indication: MENTAL DISORDER
     Route: 048
     Dates: start: 20010927, end: 20060101
  2. SEROQUEL [Suspect]
     Indication: ANXIETY
     Route: 048
     Dates: start: 20010927, end: 20060101
  3. SEROQUEL [Suspect]
     Indication: SLEEP DISORDER
     Route: 048
     Dates: start: 20010927, end: 20060101
  4. SEROQUEL [Suspect]
     Route: 048
     Dates: start: 20040101
  5. SEROQUEL [Suspect]
     Route: 048
     Dates: start: 20040101
  6. SEROQUEL [Suspect]
     Route: 048
     Dates: start: 20040101
  7. SEROQUEL [Suspect]
     Dosage: 100 MG - 400 MG
     Route: 048
     Dates: start: 20060822
  8. SEROQUEL [Suspect]
     Dosage: 100 MG - 400 MG
     Route: 048
     Dates: start: 20060822
  9. SEROQUEL [Suspect]
     Dosage: 100 MG - 400 MG
     Route: 048
     Dates: start: 20060822
  10. KLONOPIN [Concomitant]
     Dosage: 0.5 MG - 5 MG BID
     Route: 065
  11. CELEXA [Concomitant]
     Dosage: 20MG - 40 MG DAILY
     Route: 048
  12. LIPITOR [Concomitant]
     Route: 065
  13. NORVASC [Concomitant]
     Route: 065
  14. SYNTHROID [Concomitant]
     Indication: HYPOTHYROIDISM
     Dosage: 0.1 MG - 0.125 MG DAILY
     Route: 065
  15. GLUCOTROL [Concomitant]
     Route: 065

REACTIONS (11)
  - DIABETES MELLITUS [None]
  - DIZZINESS [None]
  - DYSPHAGIA [None]
  - DYSPNOEA [None]
  - DYSTHYMIC DISORDER [None]
  - HYPOAESTHESIA [None]
  - PARAESTHESIA [None]
  - POOR QUALITY SLEEP [None]
  - POST-TRAUMATIC STRESS DISORDER [None]
  - SEDATION [None]
  - TYPE 2 DIABETES MELLITUS [None]
